FAERS Safety Report 9257150 (Version 2)
Quarter: 2013Q2

REPORT INFORMATION
  Report Type: Spontaneous
  Country: US (occurrence: None)
  Receive Date: 20130423
  Receipt Date: 20130503
  Transmission Date: 20140414
  Serious: Yes (Hospitalization)
  Sender: FDA-Public Use
  Company Number: 2013-0664

PATIENT
  Age: 75 Year
  Sex: Male

DRUGS (28)
  1. KYPROLIS [Suspect]
     Indication: PLASMA CELL MYELOMA
     Dosage: 12.5714 MG (44 MG, 2 IN 1 WK), INTRAVENOUS
     Route: 042
     Dates: start: 201209
  2. ASPIRIN(ACETYLSALICYLIC ACID)(ACETYLSALICYLIC ACID) [Concomitant]
  3. ATORVASTATIN(ATORVASTATIN)(ATORVASTATIN) [Concomitant]
  4. CARVEDILOL(CARVEDILOL)(CARVEDILOL) [Concomitant]
  5. FAMOTIDINE(FAMOTIDINE)(FAMOTIDINE) [Concomitant]
  6. FISH OIL(FISH OIL)(FISH OIL) [Concomitant]
  7. FUROSEMIDE(FUROSEMIDE)(FUROSEMIDE) [Concomitant]
  8. IMODIUM(LOPERAMIDE HYDROCHLORIDE)(LOPERAMIDE [Concomitant]
  9. LATANOPROST(LATANOPROST)(LATANOPROST) [Concomitant]
  10. LISINOPRIL(LISINOPRIL)(LISINOPRIL) [Concomitant]
  11. LUPRON(LEUPRORELIN ACETATE)(LEUPRORELIN ACETATE) [Concomitant]
  12. MEGESTROL ACETATE(MEGESTROL ACETATE)(MEGESTROL ACETATE) [Concomitant]
  13. MULTI-VITAMIN(VITAMINS NOS)(VITAMINS NOS) [Concomitant]
  14. OXYCODONE - APAP(PARACETAMOL)(PARACETAMOL) [Concomitant]
  15. PROCHLORPERAZINE MALEATE(PROCHLORPERAZINE MALEATE)(PROCHLORPERAZINE MALEATE) [Concomitant]
  16. VESICARE(SOLIFENACIN SUCCINATE)(SOLIFENACIN SUCCINATE) [Concomitant]
  17. GRANISETRON(GRANISETRON)(GRANISETRON) [Concomitant]
  18. DEXAMETHASONE(DEXAMETHASONE)(DEXAMETHASONE) [Concomitant]
  19. ONDANSETRON(ONDANSETRON)(ONDANSETRON) [Concomitant]
  20. BACITRACIN(BACITRACIN)(BACITRACIN) [Concomitant]
  21. CRESTOR(ROSUVASTATIN CALCIUM)(ROSUVASTATIN CALCIUM) [Concomitant]
  22. HYDROCHLOROTHIAZIDE(HYDROCHLOROTHIAZIDE)(HYDROCHLOROTHIAZIDE) [Concomitant]
  23. LEVAQUIN(LEVOFLOXACIN)(LEVOFLOXACIN) [Concomitant]
  24. MIRALAX(MACROGOL)(MACROGOL) [Concomitant]
  25. NORVASC(AMLODIPINE BESILATE)(AMLODIPINE BESILATE) B [Concomitant]
  26. QUINAPRIL(QUINAPRIL)(QUINAPRIL) [Concomitant]
  27. TRAZODONE(TRAZODONE)(TRAZODONE) [Concomitant]
  28. FEXOFENADINE(FEXOFENADINE)(FEXOFENADINE) [Concomitant]

REACTIONS (12)
  - Confusional state [None]
  - Headache [None]
  - Chest pain [None]
  - Ejection fraction decreased [None]
  - Oedema [None]
  - Left ventricular dysfunction [None]
  - Left ventricular hypertrophy [None]
  - Left atrial dilatation [None]
  - Mitral valve incompetence [None]
  - Mitral valve calcification [None]
  - Hypertension [None]
  - Abdominal pain [None]
